FAERS Safety Report 8608900 (Version 4)
Quarter: 2012Q4

REPORT INFORMATION
  Report Type: 
  Country: US (occurrence: US)
  Receive Date: 20120611
  Receipt Date: 20120924
  Transmission Date: 20130627
  Serious: Yes (Hospitalization, Other)
  Sender: FDA-Public Use
  Company Number: US-ACTELION-A-NJ2011-52128

PATIENT
  Age: 76 Year
  Sex: Female

DRUGS (3)
  1. TRACLEER [Suspect]
     Indication: PULMONARY ARTERIAL HYPERTENSION
     Dosage: UNK
     Route: 048
  2. PLAVIX [Suspect]
  3. TYVASO [Concomitant]

REACTIONS (6)
  - Vascular occlusion [Unknown]
  - Stent placement [Unknown]
  - Hyperhidrosis [Unknown]
  - Hypertension [Unknown]
  - Abdominal pain upper [Unknown]
  - Dyspnoea [Unknown]
